FAERS Safety Report 5981514-X (Version None)
Quarter: 2008Q4

REPORT INFORMATION
  Report Type: 
  Country: None (occurrence: None)
  Receive Date: 20081202
  Receipt Date: 20081121
  Transmission Date: 20090506
  Serious: Yes (Death, Hospitalization)
  Sender: FDA-Public Use
  Company Number: GP-08-11-0008

PATIENT
  Age: 56 Year
  Sex: Male

DRUGS (5)
  1. METFORMIN, 500 MG, UNK [Suspect]
     Indication: TYPE 2 DIABETES MELLITUS
     Dosage: 500 MG, B.I.D, P.O.
     Route: 048
  2. CIPROFLOXACIN [Concomitant]
  3. PANTOPRAZOLE SODIUM [Concomitant]
  4. LEVOTHYROXINE SODIUM [Concomitant]
  5. GLYBURIDE [Concomitant]

REACTIONS (20)
  - AGITATION [None]
  - BACK PAIN [None]
  - BLOOD PRESSURE INCREASED [None]
  - CARDIO-RESPIRATORY ARREST [None]
  - DYSPNOEA EXERTIONAL [None]
  - FATIGUE [None]
  - HAEMOLYSIS [None]
  - HEART RATE INCREASED [None]
  - HYPERKALAEMIA [None]
  - HYPOTENSION [None]
  - JAUNDICE [None]
  - LEUKOCYTOSIS [None]
  - METABOLIC ACIDOSIS [None]
  - OCULAR ICTERUS [None]
  - RENAL FAILURE ACUTE [None]
  - RESPIRATORY DISTRESS [None]
  - RESPIRATORY RATE INCREASED [None]
  - TRANSAMINASES INCREASED [None]
  - TROPONIN I INCREASED [None]
  - URINE COLOUR ABNORMAL [None]
